FAERS Safety Report 18559042 (Version 1)
Quarter: 2020Q4

REPORT INFORMATION
  Report Type: Report from Study
  Country: IT (occurrence: IT)
  Receive Date: 20201130
  Receipt Date: 20201130
  Transmission Date: 20210114
  Serious: Yes (Other)
  Sender: FDA-Public Use
  Company Number: IT-TEVA-2020-IT-1852659

PATIENT
  Age: 6 Year
  Sex: Female
  Weight: 17 kg

DRUGS (7)
  1. VANCOMYCIN [Suspect]
     Active Substance: VANCOMYCIN
  2. ETHOSUXIMIDE. [Concomitant]
     Active Substance: ETHOSUXIMIDE
  3. OMEPRAZOLE. [Suspect]
     Active Substance: OMEPRAZOLE
  4. SULTIAME [Concomitant]
     Active Substance: SULTHIAME
  5. FRISIUM [Concomitant]
     Active Substance: CLOBAZAM
  6. CEFTRIAXONE. [Interacting]
     Active Substance: CEFTRIAXONE
     Indication: INFECTION
  7. DEXAMETHASONE. [Suspect]
     Active Substance: DEXAMETHASONE

REACTIONS (4)
  - Electrocardiogram QT prolonged [Unknown]
  - Hyponatraemia [Unknown]
  - Drug interaction [Unknown]
  - Hypokalaemia [Unknown]

NARRATIVE: CASE EVENT DATE: 20201111
